FAERS Safety Report 4332986-8 (Version None)
Quarter: 2004Q1

REPORT INFORMATION
  Report Type: 
  Country: None (occurrence: None)
  Receive Date: 20040330
  Receipt Date: 20040324
  Transmission Date: 20041129
  Serious: Yes (Hospitalization)
  Sender: FDA-Public Use
  Company Number: 04P-056-0247188-00

PATIENT
  Age: 68 Year
  Sex: Female

DRUGS (4)
  1. SECALIP (TRICOR) (FENOFIBRATE) (FENOFIBRATE) [Suspect]
     Indication: HYPERCHOLESTEROLAEMIA
     Dosage: 300 MG, 1 IN 1 D, ORAL
     Route: 048
  2. INFLUENZA VIRUS VACCINE POLYVALENT [Concomitant]
  3. KARVEA HCT [Concomitant]
  4. ZESTORETIC [Concomitant]

REACTIONS (5)
  - ABDOMINAL PAIN UPPER [None]
  - ERYTHEMA MULTIFORME [None]
  - LYMPHOCYTE COUNT DECREASED [None]
  - NASOPHARYNGITIS [None]
  - PYREXIA [None]
